FAERS Safety Report 17162259 (Version 1)
Quarter: 2019Q4

REPORT INFORMATION
  Report Type: Spontaneous
  Country: GB (occurrence: GB)
  Receive Date: 20191217
  Receipt Date: 20191217
  Transmission Date: 20200122
  Serious: Yes (Disabling, Other)
  Sender: FDA-Public Use
  Company Number: GB-TEVA-2019-GB-1151533

PATIENT
  Age: 78 Year
  Sex: Male
  Weight: 93 kg

DRUGS (10)
  1. SANDOZ LTD BISOPROLOL [Concomitant]
     Active Substance: BISOPROLOL
     Dosage: 2.5 MILLIGRAM
     Route: 048
  2. TEVA UK ATORVASTATIN [Concomitant]
     Active Substance: ATORVASTATIN
     Dosage: 40 MILLIGRAM
     Route: 048
  3. METFORMIN [Concomitant]
     Active Substance: METFORMIN HYDROCHLORIDE
     Dosage: 500 MILLIGRAM
     Route: 048
  4. NICORANDIL [Concomitant]
     Active Substance: NICORANDIL
     Dosage: 20 MILLIGRAM
     Route: 048
  5. SANDOZ LTD OMEPRAZOLE [Concomitant]
     Active Substance: OMEPRAZOLE
     Dosage: 250 MILLIGRAM
     Route: 048
  6. TEVA UK OFLOXACIN [Suspect]
     Active Substance: OFLOXACIN
     Indication: ORCHITIS
     Dosage: 400 MILLIGRAM PER DAY
     Route: 048
     Dates: start: 20191011, end: 20191019
  7. BRISTOL LABS ALLOPURINOL [Concomitant]
     Dosage: 100 MILLIGRAM
     Route: 048
  8. ASPAR PHARMS ASPIRIN [Concomitant]
     Dosage: 75 MILLIGRAM
     Route: 048
  9. LOSARTAN. [Concomitant]
     Active Substance: LOSARTAN
     Dosage: 25 MILLIGRAM
     Route: 048
  10. PRIMIDONE. [Concomitant]
     Active Substance: PRIMIDONE
     Indication: ESSENTIAL TREMOR
     Dosage: 50 MILLIGRAM
     Route: 048

REACTIONS (12)
  - Sleep disorder [Recovered/Resolved]
  - Flatulence [Recovered/Resolved]
  - Diarrhoea [Recovered/Resolved]
  - Myalgia [Not Recovered/Not Resolved]
  - Dizziness [Recovered/Resolved]
  - Nausea [Recovered/Resolved]
  - Vomiting [Recovered/Resolved]
  - Tendon discomfort [Not Recovered/Not Resolved]
  - Decreased appetite [Recovered/Resolved]
  - Constipation [Recovered/Resolved]
  - Balance disorder [Recovered/Resolved]
  - Malaise [Recovered/Resolved]
